FAERS Safety Report 26032419 (Version 1)
Quarter: 2025Q4

REPORT INFORMATION
  Report Type: Spontaneous
  Country: EU (occurrence: EU)
  Receive Date: 20251112
  Receipt Date: 20251112
  Transmission Date: 20260118
  Serious: Yes (Other)
  Sender: AUROBINDO
  Company Number: EU-ABBVIE-6515260

PATIENT
  Age: 45 Year
  Sex: Female

DRUGS (26)
  1. CLOZAPINE [Suspect]
     Active Substance: CLOZAPINE
     Indication: Product used for unknown indication
     Dosage: 50 MILLIGRAM (AT 21:00)
     Route: 065
  2. CLOZAPINE [Suspect]
     Active Substance: CLOZAPINE
     Dosage: 12.5 MILLIGRAM (AT 21:00)
     Route: 065
  3. CLOZAPINE [Suspect]
     Active Substance: CLOZAPINE
     Dosage: 6.25 MILLIGRAM (AT 22:00)
     Route: 065
  4. CARBIDOPA\LEVODOPA [Suspect]
     Active Substance: CARBIDOPA\LEVODOPA
     Indication: Product used for unknown indication
     Dosage: UNK (100/25 MG AT 07:00, 11:00, 15:00, 19:00)
     Route: 065
     Dates: start: 2021
  5. CARBIDOPA\LEVODOPA [Suspect]
     Active Substance: CARBIDOPA\LEVODOPA
     Dosage: UNK (100/25 MG AT 1 ? AT 07:00 AND 15:00; 1 ? AT 11:00 AND 19:00)
     Route: 065
     Dates: start: 2023
  6. CARBIDOPA\LEVODOPA [Suspect]
     Active Substance: CARBIDOPA\LEVODOPA
     Dosage: UNK (100/25 MG AT ? AT 07:00, 10:00, 13:00, 16:00, 19:00)
     Route: 065
     Dates: start: 2024
  7. ENTACAPONE [Concomitant]
     Active Substance: ENTACAPONE
     Indication: Product used for unknown indication
     Dosage: 200 MILLIGRAM (AT 07:00, 11:00, 15:00, 19:00)
     Route: 065
  8. SAFINAMIDE [Concomitant]
     Active Substance: SAFINAMIDE
     Indication: Product used for unknown indication
     Dosage: 100 MILLIGRAM (AT 07:00)
     Route: 065
  9. QUETIAPINE [Concomitant]
     Active Substance: QUETIAPINE
     Indication: Product used for unknown indication
     Dosage: UNK
     Route: 065
  10. OPICAPONE [Concomitant]
     Active Substance: OPICAPONE
     Indication: Product used for unknown indication
     Dosage: 50 MILLIGRAM (AT 22:00)
     Route: 065
  11. PIRIBEDIL [Concomitant]
     Active Substance: PIRIBEDIL
     Indication: Product used for unknown indication
     Dosage: 100 MILLIGRAM
     Route: 065
  12. PIRIBEDIL [Concomitant]
     Active Substance: PIRIBEDIL
     Dosage: 50 MILLIGRAM (AT 07:00, 10:00 AND 16:00)
     Route: 065
  13. PIRIBEDIL [Concomitant]
     Active Substance: PIRIBEDIL
     Dosage: 150 MILLIGRAM
     Route: 065
  14. ROTIGOTINE [Concomitant]
     Active Substance: ROTIGOTINE
     Indication: Product used for unknown indication
     Dosage: 2 MILLIGRAM
     Route: 065
  15. AMANTADINE [Concomitant]
     Active Substance: AMANTADINE
     Indication: Product used for unknown indication
     Dosage: UNK (100 MG AT 07:00, 50 MG AT 11:00)
     Route: 065
  16. CLONAZEPAM [Concomitant]
     Active Substance: CLONAZEPAM
     Indication: Product used for unknown indication
     Dosage: 0.5 MILLIGRAM (0.5 MG AT 22:00)
     Route: 065
  17. SERTRALINE [Concomitant]
     Active Substance: SERTRALINE HYDROCHLORIDE
     Indication: Product used for unknown indication
     Dosage: 50 MILLIGRAM (50 MG AT 07:00)
     Route: 065
  18. INBRIJA [Concomitant]
     Active Substance: LEVODOPA
     Indication: Product used for unknown indication
     Dosage: UNK
     Route: 065
  19. PRAMIPEXOLE [Concomitant]
     Active Substance: PRAMIPEXOLE
     Indication: Product used for unknown indication
     Dosage: 2.62 MILLIGRAM (SUSTAINED RELEASE)
  20. PRAMIPEXOLE [Concomitant]
     Active Substance: PRAMIPEXOLE
     Dosage: 1.31 MILLIGRAM (SUSTAINED RELEASE)
  21. PRAMIPEXOLE [Concomitant]
     Active Substance: PRAMIPEXOLE
     Dosage: 0.26 MILLIGRAM (SUSTAINED RELEASE)
  22. RASAGILINE [Concomitant]
     Active Substance: RASAGILINE
     Indication: Product used for unknown indication
     Dosage: 1 MILLIGRAM
     Route: 065
  23. BENSERAZIDE\LEVODOPA [Concomitant]
     Active Substance: BENSERAZIDE\LEVODOPA
     Indication: Product used for unknown indication
     Dosage: UNK (100/25 MG AT 22:00)
  24. BENSERAZIDE\LEVODOPA [Concomitant]
     Active Substance: BENSERAZIDE\LEVODOPA
     Dosage: UNK (200/50 MG AT 22:00)
  25. BENSERAZIDE\LEVODOPA [Concomitant]
     Active Substance: BENSERAZIDE\LEVODOPA
     Dosage: UNK (100/25 MG AT 22:00)
  26. BENSERAZIDE\LEVODOPA [Concomitant]
     Active Substance: BENSERAZIDE\LEVODOPA
     Dosage: UNK (100/25 MG AT 21:00)

REACTIONS (18)
  - Hallucination, visual [Unknown]
  - Hallucination, auditory [Unknown]
  - Hyperkinesia [Not Recovered/Not Resolved]
  - Fall [Unknown]
  - Injury [Unknown]
  - Dyskinesia [Unknown]
  - Emotional disorder [Unknown]
  - Nausea [Unknown]
  - Weight increased [Unknown]
  - Insomnia [Unknown]
  - Impulse-control disorder [Unknown]
  - Mania [Unknown]
  - Freezing phenomenon [Unknown]
  - Gait disturbance [Unknown]
  - Fatigue [Unknown]
  - On and off phenomenon [Recovering/Resolving]
  - Delusion [Recovering/Resolving]
  - Therapeutic response shortened [Unknown]

NARRATIVE: CASE EVENT DATE: 20230101
